FAERS Safety Report 5409006-7 (Version None)
Quarter: 2007Q3

REPORT INFORMATION
  Report Type: 
  Country: None (occurrence: None)
  Receive Date: 20070808
  Receipt Date: 20070726
  Transmission Date: 20080115
  Serious: Yes (Other)
  Sender: FDA-Public Use
  Company Number: US-ELI_LILLY_AND_COMPANY-US200706001247

PATIENT
  Age: 41 Year
  Sex: Female
  Weight: 64.852 kg

DRUGS (6)
  1. LISPRO [Suspect]
     Indication: DIABETES MELLITUS
     Dosage: 18 IU, DAILY (1/D)
     Route: 058
     Dates: start: 20061102
  2. *INSULIN GLARGINE [Suspect]
     Indication: DIABETES MELLITUS
     Dosage: 42 IU, DAILY (1/D)
     Route: 058
     Dates: start: 20010101
  3. ALTACE [Concomitant]
     Indication: HYPERTENSION
     Dates: start: 20000101
  4. COREG [Concomitant]
     Indication: HYPERTENSION
     Dates: start: 20010101
  5. ZOCOR [Concomitant]
     Indication: BLOOD CHOLESTEROL INCREASED
     Dates: start: 20020101
  6. ASPIRIN [Concomitant]
     Indication: PROPHYLAXIS
     Dates: start: 20030101

REACTIONS (2)
  - HYPOGLYCAEMIA [None]
  - ROAD TRAFFIC ACCIDENT [None]
